FAERS Safety Report 6230888-3 (Version None)
Quarter: 2009Q2

REPORT INFORMATION
  Report Type: 
  Country: None (occurrence: None)
  Receive Date: 20090611
  Receipt Date: 20090604
  Transmission Date: 20091009
  Serious: Yes (Life-Threatening, Hospitalization, Disabling, Other)
  Sender: FDA-Public Use
  Company Number: ADR2382009

PATIENT
  Age: 56 Year
  Sex: Female

DRUGS (4)
  1. SERTRALINE                (MFR: UNKNOWN) [Suspect]
     Indication: DEPRESSION
     Dosage: 200 MG ORAL
     Route: 048
     Dates: start: 20070521, end: 20090111
  2. LAMOTRIGINE [Concomitant]
  3. LERCANIDIPINE [Concomitant]
  4. TRAMADOL HCL [Concomitant]

REACTIONS (1)
  - PANCREATITIS NECROTISING [None]
